FAERS Safety Report 19982807 (Version 1)
Quarter: 2021Q4

REPORT INFORMATION
  Report Type: Spontaneous
  Country: US (occurrence: US)
  Receive Date: 20211021
  Receipt Date: 20211021
  Transmission Date: 20220303
  Serious: No
  Sender: FDA-Public Use
  Company Number: None

PATIENT
  Sex: Female
  Weight: 98.1 kg

DRUGS (1)
  1. REGEN-COV [Suspect]
     Active Substance: CASIRIVIMAB\IMDEVIMAB
     Dosage: ?          OTHER FREQUENCY:ONE TIME;
     Route: 042

REACTIONS (4)
  - Swelling face [None]
  - Facial pain [None]
  - Infusion related reaction [None]
  - Periorbital swelling [None]

NARRATIVE: CASE EVENT DATE: 20211021
